FAERS Safety Report 14472658 (Version 1)
Quarter: 2018Q1

REPORT INFORMATION
  Report Type: Spontaneous
  Country: JP (occurrence: JP)
  Receive Date: 20180201
  Receipt Date: 20180201
  Transmission Date: 20180509
  Serious: Yes (Other)
  Sender: FDA-Public Use
  Company Number: JP-SUN PHARMACEUTICAL INDUSTRIES LTD-2018R3-161565

PATIENT
  Sex: Male
  Weight: 1.55 kg

DRUGS (2)
  1. APRESOLINE HYDROCHLORIDE [Suspect]
     Active Substance: HYDRALAZINE HYDROCHLORIDE
     Indication: GESTATIONAL HYPERTENSION
     Dosage: UNK
     Route: 064
     Dates: start: 20160111
  2. APRESOLINE HYDROCHLORIDE [Suspect]
     Active Substance: HYDRALAZINE HYDROCHLORIDE
     Indication: GESTATIONAL HYPERTENSION
     Dosage: UNK
     Route: 064
     Dates: start: 20060109

REACTIONS (3)
  - Foetal exposure timing unspecified [Unknown]
  - Low birth weight baby [Unknown]
  - Premature baby [Unknown]
